FAERS Safety Report 4348077-6 (Version None)
Quarter: 2004Q2

REPORT INFORMATION
  Report Type: 
  Country: None (occurrence: None)
  Receive Date: 20040422
  Receipt Date: 20040413
  Transmission Date: 20050107
  Serious: Yes (Hospitalization)
  Sender: FDA-Public Use
  Company Number: 200411792BCC

PATIENT
  Age: 45 Year
  Sex: Male
  Weight: 80.2867 kg

DRUGS (5)
  1. ASPIRIN [Suspect]
     Indication: BACK PAIN
     Dosage: 650 MG, QD, ORAL
     Route: 048
     Dates: start: 19640101
  2. ASPIRIN [Suspect]
     Indication: POST PROCEDURAL PAIN
     Dosage: 650 MG, QD, ORAL
     Route: 048
     Dates: start: 19640101
  3. METOPROLOL TARTRATE [Concomitant]
  4. RABEPRAZOLE SODIUM [Concomitant]
  5. PROPACET 100 [Concomitant]

REACTIONS (2)
  - GASTRIC HAEMORRHAGE [None]
  - LOSS OF CONSCIOUSNESS [None]
